FAERS Safety Report 24183271 (Version 1)
Quarter: 2024Q3

REPORT INFORMATION
  Report Type: Spontaneous
  Country: NL (occurrence: NL)
  Receive Date: 20240807
  Receipt Date: 20240807
  Transmission Date: 20241017
  Serious: Yes (Hospitalization, Disabling)
  Sender: ACCORD
  Company Number: None

PATIENT
  Age: 23 Year
  Sex: Male
  Weight: 70 kg

DRUGS (1)
  1. CLOZAPINE [Suspect]
     Active Substance: CLOZAPINE
     Indication: Schizophrenia
     Dosage: 100MG, 1DD 3 TABLETS (22:00 IN THE EVENING) - BUILD-UP SCHEDULE
     Dates: start: 20240626

REACTIONS (2)
  - Thoracic vertebral fracture [Unknown]
  - Epilepsy [Recovered/Resolved]
